FAERS Safety Report 5334969-8 (Version None)
Quarter: 2007Q2

REPORT INFORMATION
  Report Type: 
  Country: None (occurrence: None)
  Receive Date: 20070525
  Receipt Date: 20070514
  Transmission Date: 20071010
  Serious: Yes (Hospitalization)
  Sender: FDA-Public Use
  Company Number: FR-ELI_LILLY_AND_COMPANY-FR200705003330

PATIENT
  Age: 86 Year
  Sex: Male

DRUGS (15)
  1. PROZAC [Suspect]
     Dosage: 20 MG, DAILY (1/D)
     Route: 048
  2. KARDEGIC /FRA/ [Interacting]
     Dosage: 75 MG, DAILY (1/D)
     Route: 048
     Dates: start: 20050101, end: 20070303
  3. KARDEGIC /FRA/ [Interacting]
     Dosage: UNK, UNKNOWN
     Route: 048
     Dates: start: 20070306, end: 20070309
  4. LOVENOX [Interacting]
     Dosage: 0.2 ML, DAILY (1/D)
     Route: 058
     Dates: start: 20070304, end: 20070307
  5. LOVENOX [Interacting]
     Dosage: 0.4 ML, DAILY (1/D)
     Route: 058
     Dates: start: 20070308, end: 20070309
  6. PRETERAX [Concomitant]
     Indication: HYPERTENSION
     Dosage: 2 MG, DAILY (1/D)
     Route: 048
  7. CORDARONE [Concomitant]
     Dosage: 100 MG, DAILY (1/D)
     Route: 048
  8. ADANCOR [Concomitant]
     Dosage: 100 MG, DAILY (1/D)
     Route: 048
  9. NEXIUM [Concomitant]
     Dosage: 20 MG, EACH MORNING
     Route: 065
  10. LEXOMIL [Concomitant]
     Dosage: 0.5 D/F, EACH EVENING
     Route: 065
  11. VALACYCLOVIR HCL [Concomitant]
     Dosage: 2 D/F, 3/D
     Route: 065
  12. VASTEN [Concomitant]
     Dosage: 20 MG, EACH EVENING
     Route: 065
  13. DAFALGAN /FRA/ [Concomitant]
     Dosage: 1000 MG, 3/D
     Route: 065
  14. TOPALGIC LP [Concomitant]
     Dosage: 150 MG, EACH MORNING
     Route: 065
  15. JOSACINE /FRA/ [Concomitant]
     Dosage: 2 D/F, 2/D
     Route: 065
     Dates: end: 20070305

REACTIONS (3)
  - ANAEMIA [None]
  - DRUG INTERACTION [None]
  - HAEMATOMA [None]
